FAERS Safety Report 9757840 (Version 2)
Quarter: 2013Q4

REPORT INFORMATION
  Report Type: Spontaneous
  Country: CA (occurrence: CA)
  Receive Date: 20131216
  Receipt Date: 20131216
  Transmission Date: 20140711
  Serious: Yes (Death, Hospitalization, Other)
  Sender: FDA-Public Use
  Company Number: CA-BAXTER-2013BAX048336

PATIENT
  Age: 83 Year
  Sex: Male

DRUGS (1)
  1. DIANEAL PD4 SOLUTION WITH 4.25% DEXTROSE AND 2.5 MEQ/L CALCIUM [Suspect]
     Indication: PERITONEAL DIALYSIS
     Route: 033
     Dates: start: 2008

REACTIONS (4)
  - Death [Fatal]
  - Myocardial infarction [Unknown]
  - Lung neoplasm [Unknown]
  - Lung disorder [Unknown]
